FAERS Safety Report 18750421 (Version 1)
Quarter: 2021Q1

REPORT INFORMATION
  Report Type: Report from Study
  Country: US (occurrence: US)
  Receive Date: 20210118
  Receipt Date: 20210118
  Transmission Date: 20210419
  Serious: Yes (Other)
  Sender: FDA-Public Use
  Company Number: US-TEVA-2021-US-1868812

PATIENT
  Age: 61 Year
  Sex: Female

DRUGS (1)
  1. COPAXONE [Suspect]
     Active Substance: GLATIRAMER ACETATE
     Dates: start: 20201228

REACTIONS (7)
  - Discomfort [Not Recovered/Not Resolved]
  - Chest pain [Recovered/Resolved]
  - Chest discomfort [Unknown]
  - Vertigo [Recovered/Resolved]
  - Adverse event [Unknown]
  - Cough [Unknown]
  - Choking [Unknown]

NARRATIVE: CASE EVENT DATE: 20210104
